FAERS Safety Report 15300337 (Version 2)
Quarter: 2018Q3

REPORT INFORMATION
  Report Type: Report from Study
  Country: US (occurrence: US)
  Receive Date: 20180821
  Receipt Date: 20180926
  Transmission Date: 20181010
  Serious: Yes (Other)
  Sender: FDA-Public Use
  Company Number: PHEH2018US034101

PATIENT
  Sex: Female

DRUGS (1)
  1. COSENTYX [Suspect]
     Active Substance: SECUKINUMAB
     Indication: PSORIATIC ARTHROPATHY
     Dosage: 300 MG, QMO
     Route: 058

REACTIONS (11)
  - Infection [Unknown]
  - Blood cholesterol abnormal [Unknown]
  - Pain [Unknown]
  - Vision blurred [Unknown]
  - Eye pain [Unknown]
  - Drug ineffective [Unknown]
  - Headache [Unknown]
  - Blood pressure abnormal [Unknown]
  - Malaise [Unknown]
  - Thyroid disorder [Unknown]
  - Psoriatic arthropathy [Unknown]
